FAERS Safety Report 10358411 (Version 2)
Quarter: 2014Q3

REPORT INFORMATION
  Report Type: Report from Study
  Country: PT (occurrence: PT)
  Receive Date: 20140801
  Receipt Date: 20140811
  Transmission Date: 20150326
  Serious: Yes (Hospitalization)
  Sender: FDA-Public Use
  Company Number: PT-ROCHE-1439275

PATIENT
  Age: 73 Year
  Sex: Female

DRUGS (43)
  1. DOCETAXEL [Suspect]
     Active Substance: DOCETAXEL
     Dosage: CYCLE 12
     Route: 042
     Dates: start: 20140606
  2. AMOXICILLIN/CLAVULANIC ACID [Concomitant]
     Active Substance: AMOXICILLIN\CLAVULANIC ACID
     Dosage: 2000+200/MG
     Route: 065
     Dates: start: 20131227, end: 20140106
  3. ESOMEPRAZOL [Concomitant]
     Active Substance: ESOMEPRAZOLE
     Route: 065
     Dates: start: 20131004, end: 20131104
  4. GLUCOSE/SODIUM CHLORIDE [Concomitant]
     Active Substance: DEXTROSE
     Dosage: 55MG/ML+9MG/ML
     Route: 065
     Dates: start: 20131003, end: 20131007
  5. LOPERAMIDE [Concomitant]
     Active Substance: LOPERAMIDE
     Route: 065
     Dates: start: 20140405, end: 20140407
  6. DOCETAXEL [Suspect]
     Active Substance: DOCETAXEL
     Dosage: CYCLE 11
     Route: 042
     Dates: start: 20140516
  7. MIRTAZAPINA [Concomitant]
     Active Substance: MIRTAZAPINE
     Route: 065
     Dates: start: 20131128, end: 20131130
  8. CIPROFLOXACINA [Concomitant]
     Active Substance: CIPROFLOXACIN
     Route: 065
     Dates: start: 20131220, end: 20131227
  9. BROMAZEPAM [Concomitant]
     Active Substance: BROMAZEPAM
     Route: 065
     Dates: start: 20130103
  10. TRASTUZUMAB [Suspect]
     Active Substance: TRASTUZUMAB
     Route: 042
     Dates: start: 20131003
  11. TRASTUZUMAB [Suspect]
     Active Substance: TRASTUZUMAB
     Dosage: CYCLE 11
     Route: 042
     Dates: start: 20140516
  12. TRASTUZUMAB [Suspect]
     Active Substance: TRASTUZUMAB
     Dosage: CYCLE 12
     Route: 042
     Dates: start: 20140606
  13. TRASTUZUMAB [Suspect]
     Active Substance: TRASTUZUMAB
     Dosage: LAST DOSE PRIOR TO SAE 17/JUL/2014?CYCLE 14
     Route: 042
     Dates: start: 20140717
  14. DOCETAXEL [Suspect]
     Active Substance: DOCETAXEL
     Dosage: CYCLE 13
     Route: 042
     Dates: start: 20140627
  15. MYCOSTATIN [Concomitant]
     Active Substance: NYSTATIN
     Dosage: 100000 U.I./ML
     Route: 065
     Dates: start: 20131014
  16. MYCOSTATIN [Concomitant]
     Active Substance: NYSTATIN
     Dosage: 100000/U.I/ML
     Route: 065
     Dates: start: 20131105, end: 20131111
  17. MEXAZOLAM [Concomitant]
     Active Substance: MEXAZOLAM
     Route: 065
     Dates: start: 20131128, end: 20131130
  18. CIPROFLOXACINA [Concomitant]
     Active Substance: CIPROFLOXACIN
     Route: 065
     Dates: start: 20140628, end: 20140704
  19. PARACETAMOL [Concomitant]
     Active Substance: ACETAMINOPHEN
     Dosage: 10MG/ML
     Route: 065
     Dates: start: 20131003, end: 20131007
  20. ENOXAPARIN [Concomitant]
     Active Substance: ENOXAPARIN
     Dosage: 40MG/0.4ML
     Route: 065
     Dates: start: 20131003, end: 20131007
  21. LOPERAMIDE [Concomitant]
     Active Substance: LOPERAMIDE
     Route: 065
     Dates: start: 20140425, end: 20140428
  22. NYSTATIN. [Concomitant]
     Active Substance: NYSTATIN
     Dosage: 100000 UI/ML
     Route: 065
     Dates: start: 20131105, end: 20131111
  23. PERTUZUMAB [Suspect]
     Active Substance: PERTUZUMAB
     Indication: HER-2 POSITIVE BREAST CANCER
     Dosage: LOADING DOSE
     Route: 042
     Dates: start: 20130912, end: 20130912
  24. METOCLOPRAMIDE. [Concomitant]
     Active Substance: METOCLOPRAMIDE
     Dosage: 10MG/2ML
     Route: 065
     Dates: start: 20131003, end: 20131007
  25. LOPERAMIDE [Concomitant]
     Active Substance: LOPERAMIDE
     Route: 065
     Dates: start: 20140517, end: 20140519
  26. PERTUZUMAB [Suspect]
     Active Substance: PERTUZUMAB
     Dosage: MAINTENANCE DOSE. DATE OF LAST DOSE PRIOR TO SAE 17/JUL/2014
     Route: 042
     Dates: start: 20131003
  27. TRASTUZUMAB [Suspect]
     Active Substance: TRASTUZUMAB
     Indication: HER-2 POSITIVE BREAST CANCER
     Dosage: LOADING DOSE
     Route: 042
     Dates: start: 20130912, end: 20130912
  28. TRASTUZUMAB [Suspect]
     Active Substance: TRASTUZUMAB
     Dosage: CYCLE 13
     Route: 042
     Dates: start: 20140627
  29. DOCETAXEL [Suspect]
     Active Substance: DOCETAXEL
     Indication: HER-2 POSITIVE BREAST CANCER
     Route: 042
     Dates: start: 20130912
  30. DOCETAXEL [Suspect]
     Active Substance: DOCETAXEL
     Dosage: CYCLE 14?LAST DOSE PRIOR TO SAE 17/JUL/2014
     Route: 042
     Dates: start: 20140717
  31. PANTOPRAZOLE [Concomitant]
     Active Substance: PANTOPRAZOLE SODIUM
     Route: 065
     Dates: start: 20131105
  32. GLUCOSE/SODIUM CHLORIDE [Concomitant]
     Active Substance: DEXTROSE
     Dosage: 55 MG/ML + 9 MG/ML
     Route: 065
     Dates: start: 20131003, end: 20131007
  33. FLUCONAZOLE. [Concomitant]
     Active Substance: FLUCONAZOLE
     Dosage: 2MG/ML
     Route: 065
     Dates: start: 20131003, end: 20131021
  34. FLUCONAZOLE. [Concomitant]
     Active Substance: FLUCONAZOLE
     Dosage: 2/MG/ML
     Route: 065
     Dates: start: 20131105, end: 20131122
  35. AMOXICILLIN. [Concomitant]
     Active Substance: AMOXICILLIN
     Dosage: SOLE DOSE
     Route: 065
     Dates: start: 20140523, end: 20140523
  36. ZOLPIDEM [Concomitant]
     Active Substance: ZOLPIDEM\ZOLPIDEM TARTRATE
     Route: 065
     Dates: start: 20131128, end: 20131130
  37. NITROFURANTOINA [Concomitant]
     Route: 065
     Dates: start: 20140620, end: 20140625
  38. AMOXICILLIN. [Concomitant]
     Active Substance: AMOXICILLIN
     Route: 065
     Dates: start: 20140523, end: 20140523
  39. FOSAVANCE [Concomitant]
     Active Substance: ALENDRONATE SODIUM\CHOLECALCIFEROL
     Route: 065
     Dates: start: 2010
  40. TOLVON [Concomitant]
     Active Substance: MIANSERIN
     Route: 065
     Dates: start: 2005, end: 20140102
  41. FLUIMUCIL [Concomitant]
     Active Substance: ACETYLCYSTEINE
     Route: 065
     Dates: start: 20131213, end: 20131218
  42. AZITROMICINA [Concomitant]
     Active Substance: AZITHROMYCIN DIHYDRATE
     Route: 065
     Dates: start: 20131213, end: 20131215
  43. TRAMADOL [Concomitant]
     Active Substance: TRAMADOL
     Dosage: 100MG/2ML
     Route: 065
     Dates: start: 20131003, end: 20131007

REACTIONS (1)
  - Cellulitis [Recovered/Resolved]

NARRATIVE: CASE EVENT DATE: 20140719
